FAERS Safety Report 7355187-8 (Version None)
Quarter: 2011Q1

REPORT INFORMATION
  Report Type: 
  Country: None (occurrence: None)
  Receive Date: 20110316
  Receipt Date: 20110304
  Transmission Date: 20110831
  Serious: No
  Sender: FDA-Public Use
  Company Number: US-PFIZER INC-2011019116

PATIENT
  Sex: Female

DRUGS (2)
  1. ADVIL COLD AND SINUS [Suspect]
     Dosage: UNK
  2. ADVIL LIQUI-GELS [Suspect]
     Dosage: UNK

REACTIONS (4)
  - INCORRECT DOSE ADMINISTERED [None]
  - DRUG INEFFECTIVE [None]
  - PRODUCT COLOUR ISSUE [None]
  - DRUG EFFECT DECREASED [None]
